FAERS Safety Report 7440142-X (Version None)
Quarter: 2011Q2

REPORT INFORMATION
  Report Type: 
  Country: None (occurrence: None)
  Receive Date: 20110427
  Receipt Date: 20110418
  Transmission Date: 20111010
  Serious: Yes (Hospitalization)
  Sender: FDA-Public Use
  Company Number: US-ASTRAZENECA-2011SE22649

PATIENT
  Age: 68 Year
  Sex: Female
  Weight: 68 kg

DRUGS (5)
  1. THORAZINE [Concomitant]
  2. ABILIFY [Concomitant]
     Dates: start: 20030101, end: 20110218
  3. SEROQUEL [Suspect]
     Indication: SCHIZOPHRENIA
     Route: 048
     Dates: start: 20081001, end: 20110101
  4. VITAMINS [Concomitant]
  5. PROLIXIN [Concomitant]

REACTIONS (6)
  - HALLUCINATION, VISUAL [None]
  - SCHIZOPHRENIFORM DISORDER [None]
  - BLOOD GLUCOSE INCREASED [None]
  - MUSCULOSKELETAL STIFFNESS [None]
  - AGGRESSION [None]
  - DRUG INEFFECTIVE [None]
